FAERS Safety Report 25453564 (Version 2)
Quarter: 2025Q2

REPORT INFORMATION
  Report Type: Spontaneous
  Country: CA (occurrence: CA)
  Receive Date: 20250619
  Receipt Date: 20250623
  Transmission Date: 20250716
  Serious: Yes (Death, Life-Threatening, Hospitalization, Disabling, Other)
  Sender: Haleon PLC
  Company Number: CA-002147023-NVSC2025CA092726

PATIENT
  Age: 43 Year
  Sex: Female

DRUGS (657)
  1. TUMS [Suspect]
     Active Substance: CALCIUM CARBONATE
     Indication: Product used for unknown indication
  2. TUMS [Suspect]
     Active Substance: CALCIUM CARBONATE
  3. TUMS [Suspect]
     Active Substance: CALCIUM CARBONATE
  4. TUMS [Suspect]
     Active Substance: CALCIUM CARBONATE
  5. PREDNISONE [Suspect]
     Active Substance: PREDNISONE
     Indication: Psoriatic arthropathy
  6. PREDNISONE [Suspect]
     Active Substance: PREDNISONE
     Indication: Condition aggravated
     Route: 048
  7. PREDNISONE [Suspect]
     Active Substance: PREDNISONE
     Indication: Rheumatoid arthritis
  8. PREDNISONE [Suspect]
     Active Substance: PREDNISONE
     Route: 042
  9. PREDNISONE [Suspect]
     Active Substance: PREDNISONE
     Route: 048
  10. PREDNISONE [Suspect]
     Active Substance: PREDNISONE
     Route: 048
  11. SULFASALAZINE [Suspect]
     Active Substance: SULFASALAZINE
     Indication: Rheumatoid arthritis
     Dosage: 2 G, Q24H
     Route: 048
  12. SULFASALAZINE [Suspect]
     Active Substance: SULFASALAZINE
     Dosage: 1 G, BID
  13. SULFASALAZINE [Suspect]
     Active Substance: SULFASALAZINE
     Route: 048
  14. SULFASALAZINE [Suspect]
     Active Substance: SULFASALAZINE
     Dosage: 1 G, BID
  15. SULFASALAZINE [Suspect]
     Active Substance: SULFASALAZINE
     Dosage: UNK UNK, BID
     Route: 048
  16. SULFASALAZINE [Suspect]
     Active Substance: SULFASALAZINE
  17. SULFASALAZINE [Suspect]
     Active Substance: SULFASALAZINE
     Dosage: 1000 MG, BID
     Route: 048
  18. SULFASALAZINE [Suspect]
     Active Substance: SULFASALAZINE
     Route: 048
  19. SULFASALAZINE [Suspect]
     Active Substance: SULFASALAZINE
  20. SULFASALAZINE [Suspect]
     Active Substance: SULFASALAZINE
     Route: 048
  21. SULFASALAZINE [Suspect]
     Active Substance: SULFASALAZINE
     Route: 048
  22. COSENTYX [Suspect]
     Active Substance: SECUKINUMAB
     Indication: Psoriatic arthropathy
     Route: 042
  23. RITUXIMAB [Suspect]
     Active Substance: RITUXIMAB
     Indication: Rheumatoid arthritis
     Route: 042
  24. RITUXIMAB [Suspect]
     Active Substance: RITUXIMAB
     Route: 042
  25. RITUXIMAB [Suspect]
     Active Substance: RITUXIMAB
     Route: 042
  26. RITUXIMAB [Suspect]
     Active Substance: RITUXIMAB
  27. RITUXIMAB [Suspect]
     Active Substance: RITUXIMAB
     Route: 042
  28. RITUXIMAB [Suspect]
     Active Substance: RITUXIMAB
  29. RITUXIMAB [Suspect]
     Active Substance: RITUXIMAB
     Route: 042
  30. RITUXIMAB [Suspect]
     Active Substance: RITUXIMAB
  31. RITUXIMAB [Suspect]
     Active Substance: RITUXIMAB
     Route: 042
  32. PREGABALIN [Suspect]
     Active Substance: PREGABALIN
     Indication: Rheumatoid arthritis
  33. CERTOLIZUMAB PEGOL [Suspect]
     Active Substance: CERTOLIZUMAB PEGOL
     Indication: Rheumatoid arthritis
     Route: 058
  34. LEFLUNOMIDE [Suspect]
     Active Substance: LEFLUNOMIDE
     Indication: Rheumatoid arthritis
     Route: 048
  35. LEFLUNOMIDE [Suspect]
     Active Substance: LEFLUNOMIDE
     Dosage: 20 MG, QD
     Route: 048
  36. LEFLUNOMIDE [Suspect]
     Active Substance: LEFLUNOMIDE
  37. DOXYCYCLINE [Suspect]
     Active Substance: DOXYCYCLINE
     Indication: Product used for unknown indication
  38. SULFAMETHOXAZOLE AND TRIMETHOPRIM [Suspect]
     Active Substance: SULFAMETHOXAZOLE\TRIMETHOPRIM
     Indication: Product used for unknown indication
  39. FOSAMAX [Suspect]
     Active Substance: ALENDRONATE SODIUM
     Indication: Rheumatoid arthritis
     Route: 048
  40. CHLORHEXIDINE [Suspect]
     Active Substance: CHLORHEXIDINE
     Indication: Product used for unknown indication
  41. CHLORHEXIDINE [Suspect]
     Active Substance: CHLORHEXIDINE
     Route: 002
  42. CHLORHEXIDINE [Suspect]
     Active Substance: CHLORHEXIDINE
  43. METHYLPREDNISOLONE SODIUM SUCCINATE [Suspect]
     Active Substance: METHYLPREDNISOLONE SODIUM SUCCINATE
     Indication: Product used for unknown indication
  44. METHYLPREDNISOLONE SODIUM SUCCINATE [Suspect]
     Active Substance: METHYLPREDNISOLONE SODIUM SUCCINATE
  45. TOPICORT [Suspect]
     Active Substance: DESOXIMETASONE
     Indication: Rheumatoid arthritis
     Route: 050
  46. TOPICORT [Suspect]
     Active Substance: DESOXIMETASONE
     Route: 058
  47. TOPICORT [Suspect]
     Active Substance: DESOXIMETASONE
     Route: 050
  48. TOPICORT [Suspect]
     Active Substance: DESOXIMETASONE
     Route: 048
  49. CETRIMIDE [Suspect]
     Active Substance: CETRIMIDE
     Indication: Product used for unknown indication
  50. CETRIMIDE [Suspect]
     Active Substance: CETRIMIDE
  51. CORTISONE [Suspect]
     Active Substance: CORTISONE
     Indication: Rheumatoid arthritis
     Route: 050
  52. CORTISONE [Suspect]
     Active Substance: CORTISONE
     Route: 048
  53. CORTISONE [Suspect]
     Active Substance: CORTISONE
  54. CORTISONE [Suspect]
     Active Substance: CORTISONE
     Route: 058
  55. CORTISONE [Suspect]
     Active Substance: CORTISONE
     Route: 050
  56. CORTISONE [Suspect]
     Active Substance: CORTISONE
  57. CORTISONE [Suspect]
     Active Substance: CORTISONE
     Route: 050
  58. CORTISONE [Suspect]
     Active Substance: CORTISONE
     Route: 003
  59. CORTISONE [Suspect]
     Active Substance: CORTISONE
     Route: 050
  60. CORTISONE [Suspect]
     Active Substance: CORTISONE
     Route: 058
  61. CELECOXIB [Suspect]
     Active Substance: CELECOXIB
     Indication: Rheumatoid arthritis
     Dosage: 2 DOSAGE FORM, QD
     Route: 048
  62. ACTEMRA [Suspect]
     Active Substance: TOCILIZUMAB
     Indication: Rheumatoid arthritis
     Route: 050
  63. ACTEMRA [Suspect]
     Active Substance: TOCILIZUMAB
  64. ACTEMRA [Suspect]
     Active Substance: TOCILIZUMAB
  65. ACTEMRA [Suspect]
     Active Substance: TOCILIZUMAB
     Route: 042
  66. ACTEMRA [Suspect]
     Active Substance: TOCILIZUMAB
     Route: 050
  67. ACTEMRA [Suspect]
     Active Substance: TOCILIZUMAB
  68. ACTEMRA [Suspect]
     Active Substance: TOCILIZUMAB
     Route: 050
  69. ACTEMRA [Suspect]
     Active Substance: TOCILIZUMAB
     Route: 058
  70. ACTEMRA [Suspect]
     Active Substance: TOCILIZUMAB
     Route: 048
  71. ACTEMRA [Suspect]
     Active Substance: TOCILIZUMAB
     Route: 048
  72. ACTEMRA [Suspect]
     Active Substance: TOCILIZUMAB
     Route: 050
  73. ACTEMRA [Suspect]
     Active Substance: TOCILIZUMAB
     Route: 058
  74. ACTEMRA [Suspect]
     Active Substance: TOCILIZUMAB
     Route: 042
  75. ACTEMRA [Suspect]
     Active Substance: TOCILIZUMAB
     Route: 042
  76. ACTEMRA [Suspect]
     Active Substance: TOCILIZUMAB
     Route: 050
  77. ACTEMRA [Suspect]
     Active Substance: TOCILIZUMAB
  78. ACTEMRA [Suspect]
     Active Substance: TOCILIZUMAB
     Route: 042
  79. ACTEMRA [Suspect]
     Active Substance: TOCILIZUMAB
  80. ACTEMRA [Suspect]
     Active Substance: TOCILIZUMAB
  81. ACTEMRA [Suspect]
     Active Substance: TOCILIZUMAB
  82. ACTEMRA [Suspect]
     Active Substance: TOCILIZUMAB
     Route: 058
  83. ACTEMRA [Suspect]
     Active Substance: TOCILIZUMAB
  84. ACTEMRA [Suspect]
     Active Substance: TOCILIZUMAB
     Route: 042
  85. ACTEMRA [Suspect]
     Active Substance: TOCILIZUMAB
     Route: 042
  86. ACTEMRA [Suspect]
     Active Substance: TOCILIZUMAB
     Route: 050
  87. ACTEMRA [Suspect]
     Active Substance: TOCILIZUMAB
     Route: 058
  88. ACTEMRA [Suspect]
     Active Substance: TOCILIZUMAB
     Route: 050
  89. ACTEMRA [Suspect]
     Active Substance: TOCILIZUMAB
     Route: 048
  90. CIMZIA [Suspect]
     Active Substance: CERTOLIZUMAB PEGOL
     Indication: Psoriasis
  91. CIMZIA [Suspect]
     Active Substance: CERTOLIZUMAB PEGOL
     Indication: Rheumatoid arthritis
     Route: 058
  92. CIMZIA [Suspect]
     Active Substance: CERTOLIZUMAB PEGOL
     Dosage: 1 DOSAGE FORM, Q12H
     Route: 058
  93. CIMZIA [Suspect]
     Active Substance: CERTOLIZUMAB PEGOL
     Route: 058
  94. CHLORAPREP [Suspect]
     Active Substance: CHLORHEXIDINE GLUCONATE\ISOPROPYL ALCOHOL
     Indication: Rheumatoid arthritis
     Route: 050
  95. CHLORAPREP [Suspect]
     Active Substance: CHLORHEXIDINE GLUCONATE\ISOPROPYL ALCOHOL
     Indication: Product used for unknown indication
     Route: 048
  96. CHLORAPREP [Suspect]
     Active Substance: CHLORHEXIDINE GLUCONATE\ISOPROPYL ALCOHOL
  97. CHLORAPREP [Suspect]
     Active Substance: CHLORHEXIDINE GLUCONATE\ISOPROPYL ALCOHOL
  98. CHLORAPREP [Suspect]
     Active Substance: CHLORHEXIDINE GLUCONATE\ISOPROPYL ALCOHOL
  99. CHLORAPREP [Suspect]
     Active Substance: CHLORHEXIDINE GLUCONATE\ISOPROPYL ALCOHOL
  100. OTEZLA [Suspect]
     Active Substance: APREMILAST
     Indication: Product used for unknown indication
     Dosage: 3 MG, BID
     Route: 050
  101. OTEZLA [Suspect]
     Active Substance: APREMILAST
     Dosage: 3 MG, BID
     Route: 048
  102. OTEZLA [Suspect]
     Active Substance: APREMILAST
     Route: 050
  103. OTEZLA [Suspect]
     Active Substance: APREMILAST
     Route: 048
  104. CORTISONE ACETATE [Suspect]
     Active Substance: CORTISONE ACETATE
     Indication: Rheumatoid arthritis
  105. CORTISONE ACETATE [Suspect]
     Active Substance: CORTISONE ACETATE
     Route: 058
  106. CORTISONE ACETATE [Suspect]
     Active Substance: CORTISONE ACETATE
  107. CORTISONE ACETATE [Suspect]
     Active Substance: CORTISONE ACETATE
     Route: 050
  108. CORTISONE ACETATE [Suspect]
     Active Substance: CORTISONE ACETATE
  109. CORTISONE ACETATE [Suspect]
     Active Substance: CORTISONE ACETATE
     Dosage: 25 MG, QD (TOPICAL)
  110. CORTISONE ACETATE [Suspect]
     Active Substance: CORTISONE ACETATE
  111. CORTISONE ACETATE [Suspect]
     Active Substance: CORTISONE ACETATE
  112. CORTISONE ACETATE [Suspect]
     Active Substance: CORTISONE ACETATE
  113. CORTISONE ACETATE [Suspect]
     Active Substance: CORTISONE ACETATE
     Route: 050
  114. CORTISONE ACETATE [Suspect]
     Active Substance: CORTISONE ACETATE
  115. CORTISONE ACETATE [Suspect]
     Active Substance: CORTISONE ACETATE
  116. CORTISONE ACETATE [Suspect]
     Active Substance: CORTISONE ACETATE
     Route: 050
  117. CORTISONE ACETATE [Suspect]
     Active Substance: CORTISONE ACETATE
     Route: 048
  118. CORTISONE ACETATE [Suspect]
     Active Substance: CORTISONE ACETATE
  119. CORTISONE ACETATE [Suspect]
     Active Substance: CORTISONE ACETATE
  120. CORTISONE ACETATE [Suspect]
     Active Substance: CORTISONE ACETATE
  121. CORTISONE ACETATE [Suspect]
     Active Substance: CORTISONE ACETATE
  122. CORTISONE ACETATE [Suspect]
     Active Substance: CORTISONE ACETATE
     Route: 050
  123. CORTISONE ACETATE [Suspect]
     Active Substance: CORTISONE ACETATE
     Route: 048
  124. CORTISONE ACETATE [Suspect]
     Active Substance: CORTISONE ACETATE
  125. CORTISONE ACETATE [Suspect]
     Active Substance: CORTISONE ACETATE
  126. CORTISONE ACETATE [Suspect]
     Active Substance: CORTISONE ACETATE
     Route: 050
  127. CORTISONE ACETATE [Suspect]
     Active Substance: CORTISONE ACETATE
  128. CORTISONE ACETATE [Suspect]
     Active Substance: CORTISONE ACETATE
     Route: 050
  129. CORTISONE ACETATE [Suspect]
     Active Substance: CORTISONE ACETATE
  130. CORTISONE ACETATE [Suspect]
     Active Substance: CORTISONE ACETATE
     Route: 050
  131. CORTISONE ACETATE [Suspect]
     Active Substance: CORTISONE ACETATE
     Route: 048
  132. CORTISONE ACETATE [Suspect]
     Active Substance: CORTISONE ACETATE
  133. CORTISONE ACETATE [Suspect]
     Active Substance: CORTISONE ACETATE
  134. CORTISONE ACETATE [Suspect]
     Active Substance: CORTISONE ACETATE
  135. CORTISONE ACETATE [Suspect]
     Active Substance: CORTISONE ACETATE
  136. CORTISONE ACETATE [Suspect]
     Active Substance: CORTISONE ACETATE
  137. CORTISONE ACETATE [Suspect]
     Active Substance: CORTISONE ACETATE
  138. CORTISONE ACETATE [Suspect]
     Active Substance: CORTISONE ACETATE
  139. CORTISONE ACETATE [Suspect]
     Active Substance: CORTISONE ACETATE
  140. CORTISONE ACETATE [Suspect]
     Active Substance: CORTISONE ACETATE
     Route: 003
  141. CORTISONE ACETATE [Suspect]
     Active Substance: CORTISONE ACETATE
  142. CORTISONE ACETATE [Suspect]
     Active Substance: CORTISONE ACETATE
  143. CORTISONE ACETATE [Suspect]
     Active Substance: CORTISONE ACETATE
  144. CORTISONE ACETATE [Suspect]
     Active Substance: CORTISONE ACETATE
  145. CORTISONE ACETATE [Suspect]
     Active Substance: CORTISONE ACETATE
  146. CORTISONE ACETATE [Suspect]
     Active Substance: CORTISONE ACETATE
     Route: 058
  147. CORTISONE ACETATE [Suspect]
     Active Substance: CORTISONE ACETATE
  148. CORTISONE ACETATE [Suspect]
     Active Substance: CORTISONE ACETATE
  149. CORTISONE ACETATE [Suspect]
     Active Substance: CORTISONE ACETATE
     Route: 058
  150. CORTISONE ACETATE [Suspect]
     Active Substance: CORTISONE ACETATE
  151. CORTISONE ACETATE [Suspect]
     Active Substance: CORTISONE ACETATE
  152. CORTISONE ACETATE [Suspect]
     Active Substance: CORTISONE ACETATE
  153. CORTISONE ACETATE [Suspect]
     Active Substance: CORTISONE ACETATE
     Route: 050
  154. CORTISONE ACETATE [Suspect]
     Active Substance: CORTISONE ACETATE
  155. CORTISONE ACETATE [Suspect]
     Active Substance: CORTISONE ACETATE
  156. CORTISONE ACETATE [Suspect]
     Active Substance: CORTISONE ACETATE
  157. PERIOGARD [Suspect]
     Active Substance: CHLORHEXIDINE GLUCONATE
     Indication: Product used for unknown indication
     Route: 050
  158. PERIOGARD [Suspect]
     Active Substance: CHLORHEXIDINE GLUCONATE
     Indication: Rheumatoid arthritis
  159. PERIOGARD [Suspect]
     Active Substance: CHLORHEXIDINE GLUCONATE
  160. PERIOGARD [Suspect]
     Active Substance: CHLORHEXIDINE GLUCONATE
     Route: 002
  161. HYDROCORTISONE SODIUM SUCCINATE [Suspect]
     Active Substance: HYDROCORTISONE SODIUM SUCCINATE
     Indication: Rheumatoid arthritis
     Route: 030
  162. RAMIPRIL [Suspect]
     Active Substance: RAMIPRIL
     Indication: Product used for unknown indication
  163. RAMIPRIL [Suspect]
     Active Substance: RAMIPRIL
  164. INFLIXIMAB [Suspect]
     Active Substance: INFLIXIMAB
     Indication: Rheumatoid arthritis
     Route: 050
  165. INFLIXIMAB [Suspect]
     Active Substance: INFLIXIMAB
     Route: 042
  166. INFLIXIMAB [Suspect]
     Active Substance: INFLIXIMAB
  167. INFLIXIMAB [Suspect]
     Active Substance: INFLIXIMAB
  168. INFLIXIMAB [Suspect]
     Active Substance: INFLIXIMAB
     Route: 042
  169. INFLIXIMAB [Suspect]
     Active Substance: INFLIXIMAB
     Route: 050
  170. INFLIXIMAB [Suspect]
     Active Substance: INFLIXIMAB
     Route: 042
  171. FOLIC ACID [Suspect]
     Active Substance: FOLIC ACID
     Indication: Rheumatoid arthritis
  172. FOLIC ACID [Suspect]
     Active Substance: FOLIC ACID
     Route: 050
  173. FOLIC ACID [Suspect]
     Active Substance: FOLIC ACID
     Route: 058
  174. FOLIC ACID [Suspect]
     Active Substance: FOLIC ACID
  175. FOLIC ACID [Suspect]
     Active Substance: FOLIC ACID
  176. FOLIC ACID [Suspect]
     Active Substance: FOLIC ACID
  177. FOLIC ACID [Suspect]
     Active Substance: FOLIC ACID
     Route: 050
  178. FOLIC ACID [Suspect]
     Active Substance: FOLIC ACID
  179. FOLIC ACID [Suspect]
     Active Substance: FOLIC ACID
  180. FOLIC ACID [Suspect]
     Active Substance: FOLIC ACID
  181. FOLIC ACID [Suspect]
     Active Substance: FOLIC ACID
     Dosage: 5 MG, QD
  182. FOLIC ACID [Suspect]
     Active Substance: FOLIC ACID
  183. FOLIC ACID [Suspect]
     Active Substance: FOLIC ACID
  184. FOLIC ACID [Suspect]
     Active Substance: FOLIC ACID
  185. FOLIC ACID [Suspect]
     Active Substance: FOLIC ACID
  186. FOLIC ACID [Suspect]
     Active Substance: FOLIC ACID
  187. FOLIC ACID [Suspect]
     Active Substance: FOLIC ACID
  188. FOLIC ACID [Suspect]
     Active Substance: FOLIC ACID
  189. FOLIC ACID [Suspect]
     Active Substance: FOLIC ACID
  190. FOLIC ACID [Suspect]
     Active Substance: FOLIC ACID
  191. FOLIC ACID [Suspect]
     Active Substance: FOLIC ACID
  192. FOLIC ACID [Suspect]
     Active Substance: FOLIC ACID
  193. FOLIC ACID [Suspect]
     Active Substance: FOLIC ACID
  194. FOLIC ACID [Suspect]
     Active Substance: FOLIC ACID
     Route: 048
  195. FOLIC ACID [Suspect]
     Active Substance: FOLIC ACID
     Route: 048
  196. FOLIC ACID [Suspect]
     Active Substance: FOLIC ACID
     Route: 050
  197. FOLIC ACID [Suspect]
     Active Substance: FOLIC ACID
  198. FOLIC ACID [Suspect]
     Active Substance: FOLIC ACID
     Route: 058
  199. FOLIC ACID [Suspect]
     Active Substance: FOLIC ACID
  200. FOLIC ACID [Suspect]
     Active Substance: FOLIC ACID
  201. TOFACITINIB [Suspect]
     Active Substance: TOFACITINIB
     Indication: Rheumatoid arthritis
     Dosage: 5 MG, QW
     Route: 048
  202. TOFACITINIB [Suspect]
     Active Substance: TOFACITINIB
     Dosage: 5 MG, QD
  203. SULFAMETHOXAZOLE [Suspect]
     Active Substance: SULFAMETHOXAZOLE
     Indication: Rheumatoid arthritis
  204. SULFAMETHOXAZOLE [Suspect]
     Active Substance: SULFAMETHOXAZOLE
  205. DESOXIMETASONE [Suspect]
     Active Substance: DESOXIMETASONE
     Indication: Rheumatoid arthritis
     Route: 050
  206. DESOXIMETASONE [Suspect]
     Active Substance: DESOXIMETASONE
     Route: 048
  207. DESOXIMETASONE [Suspect]
     Active Substance: DESOXIMETASONE
     Route: 050
  208. DESOXIMETASONE [Suspect]
     Active Substance: DESOXIMETASONE
     Route: 058
  209. DESOXIMETASONE [Suspect]
     Active Substance: DESOXIMETASONE
     Route: 050
  210. DESOXIMETASONE [Suspect]
     Active Substance: DESOXIMETASONE
     Route: 048
  211. DESOXIMETASONE [Suspect]
     Active Substance: DESOXIMETASONE
     Route: 050
  212. DESOXIMETASONE [Suspect]
     Active Substance: DESOXIMETASONE
     Route: 048
  213. DESOXIMETASONE [Suspect]
     Active Substance: DESOXIMETASONE
     Route: 050
  214. DESOXIMETASONE [Suspect]
     Active Substance: DESOXIMETASONE
     Route: 050
  215. DESOXIMETASONE [Suspect]
     Active Substance: DESOXIMETASONE
     Route: 058
  216. DESOXIMETASONE [Suspect]
     Active Substance: DESOXIMETASONE
  217. DESOXIMETASONE [Suspect]
     Active Substance: DESOXIMETASONE
     Route: 003
  218. DESOXIMETASONE [Suspect]
     Active Substance: DESOXIMETASONE
     Route: 050
  219. DESOXIMETASONE [Suspect]
     Active Substance: DESOXIMETASONE
  220. DESOXIMETASONE [Suspect]
     Active Substance: DESOXIMETASONE
  221. DESOXIMETASONE [Suspect]
     Active Substance: DESOXIMETASONE
  222. DESOXIMETASONE [Suspect]
     Active Substance: DESOXIMETASONE
     Route: 003
  223. DESOXIMETASONE [Suspect]
     Active Substance: DESOXIMETASONE
     Route: 050
  224. DESOXIMETASONE [Suspect]
     Active Substance: DESOXIMETASONE
  225. DESOXIMETASONE [Suspect]
     Active Substance: DESOXIMETASONE
  226. DESOXIMETASONE [Suspect]
     Active Substance: DESOXIMETASONE
     Route: 050
  227. DESOXIMETASONE [Suspect]
     Active Substance: DESOXIMETASONE
     Route: 050
  228. DESOXIMETASONE [Suspect]
     Active Substance: DESOXIMETASONE
     Route: 058
  229. DESOXIMETASONE [Suspect]
     Active Substance: DESOXIMETASONE
     Route: 050
  230. DESOXIMETASONE [Suspect]
     Active Substance: DESOXIMETASONE
     Route: 003
  231. DESOXIMETASONE [Suspect]
     Active Substance: DESOXIMETASONE
     Route: 050
  232. DESOXIMETASONE [Suspect]
     Active Substance: DESOXIMETASONE
  233. DESOXIMETASONE [Suspect]
     Active Substance: DESOXIMETASONE
     Dosage: 25 MG, QW
     Route: 048
  234. DESOXIMETASONE [Suspect]
     Active Substance: DESOXIMETASONE
  235. DESOXIMETASONE [Suspect]
     Active Substance: DESOXIMETASONE
     Route: 058
  236. DESOXIMETASONE [Suspect]
     Active Substance: DESOXIMETASONE
     Route: 050
  237. DESOXIMETASONE [Suspect]
     Active Substance: DESOXIMETASONE
     Route: 048
  238. CELECOXIB [Suspect]
     Active Substance: CELECOXIB
     Indication: Product used for unknown indication
     Dosage: 1 DOSAGE FORM, QD
  239. CELECOXIB [Suspect]
     Active Substance: CELECOXIB
     Dosage: 2 DOSAGE FORM, QD
     Route: 050
  240. CELECOXIB [Suspect]
     Active Substance: CELECOXIB
     Dosage: UNK, QD
  241. CELECOXIB [Suspect]
     Active Substance: CELECOXIB
     Dosage: 2 DOSAGE FORM, QD
  242. VITAMIN C [Suspect]
     Active Substance: ASCORBIC ACID
     Indication: Rheumatoid arthritis
  243. VITAMIN C [Suspect]
     Active Substance: ASCORBIC ACID
  244. PLAQUENIL [Suspect]
     Active Substance: HYDROXYCHLOROQUINE SULFATE
     Indication: Rheumatoid arthritis
     Dosage: 400 MG, QD
     Route: 048
  245. PLAQUENIL [Suspect]
     Active Substance: HYDROXYCHLOROQUINE SULFATE
  246. PLAQUENIL [Suspect]
     Active Substance: HYDROXYCHLOROQUINE SULFATE
  247. PLAQUENIL [Suspect]
     Active Substance: HYDROXYCHLOROQUINE SULFATE
  248. PLAQUENIL [Suspect]
     Active Substance: HYDROXYCHLOROQUINE SULFATE
  249. PLAQUENIL [Suspect]
     Active Substance: HYDROXYCHLOROQUINE SULFATE
  250. PLAQUENIL [Suspect]
     Active Substance: HYDROXYCHLOROQUINE SULFATE
  251. PLAQUENIL [Suspect]
     Active Substance: HYDROXYCHLOROQUINE SULFATE
  252. PLAQUENIL [Suspect]
     Active Substance: HYDROXYCHLOROQUINE SULFATE
  253. PLAQUENIL [Suspect]
     Active Substance: HYDROXYCHLOROQUINE SULFATE
     Dosage: 400 MG, QD
     Route: 048
  254. PLAQUENIL [Suspect]
     Active Substance: HYDROXYCHLOROQUINE SULFATE
     Route: 048
  255. CHLORHEXIDINE GLUCONATE [Suspect]
     Active Substance: CHLORHEXIDINE GLUCONATE
     Indication: Rheumatoid arthritis
     Route: 050
  256. CHLORHEXIDINE GLUCONATE [Suspect]
     Active Substance: CHLORHEXIDINE GLUCONATE
     Route: 002
  257. CETIRIZINE HYDROCHLORIDE AND PSEUDOEPHEDRINE HYDROCHLORIDE [Suspect]
     Active Substance: CETIRIZINE HYDROCHLORIDE\PSEUDOEPHEDRINE HYDROCHLORIDE
     Indication: Rheumatoid arthritis
  258. CETIRIZINE HYDROCHLORIDE AND PSEUDOEPHEDRINE HYDROCHLORIDE [Suspect]
     Active Substance: CETIRIZINE HYDROCHLORIDE\PSEUDOEPHEDRINE HYDROCHLORIDE
  259. CETIRIZINE HYDROCHLORIDE AND PSEUDOEPHEDRINE HYDROCHLORIDE [Suspect]
     Active Substance: CETIRIZINE HYDROCHLORIDE\PSEUDOEPHEDRINE HYDROCHLORIDE
  260. CETIRIZINE HYDROCHLORIDE AND PSEUDOEPHEDRINE HYDROCHLORIDE [Suspect]
     Active Substance: CETIRIZINE HYDROCHLORIDE\PSEUDOEPHEDRINE HYDROCHLORIDE
  261. CETIRIZINE HYDROCHLORIDE AND PSEUDOEPHEDRINE HYDROCHLORIDE [Suspect]
     Active Substance: CETIRIZINE HYDROCHLORIDE\PSEUDOEPHEDRINE HYDROCHLORIDE
  262. CETIRIZINE HYDROCHLORIDE AND PSEUDOEPHEDRINE HYDROCHLORIDE [Suspect]
     Active Substance: CETIRIZINE HYDROCHLORIDE\PSEUDOEPHEDRINE HYDROCHLORIDE
     Dosage: 10 MG, Q24H
     Route: 048
  263. CETIRIZINE HYDROCHLORIDE AND PSEUDOEPHEDRINE HYDROCHLORIDE [Suspect]
     Active Substance: CETIRIZINE HYDROCHLORIDE\PSEUDOEPHEDRINE HYDROCHLORIDE
  264. CETIRIZINE HYDROCHLORIDE AND PSEUDOEPHEDRINE HYDROCHLORIDE [Suspect]
     Active Substance: CETIRIZINE HYDROCHLORIDE\PSEUDOEPHEDRINE HYDROCHLORIDE
  265. USTEKINUMAB [Suspect]
     Active Substance: USTEKINUMAB
     Indication: Rheumatoid arthritis
     Route: 042
  266. USTEKINUMAB [Suspect]
     Active Substance: USTEKINUMAB
     Route: 058
  267. MYCOPHENOLATE MOFETIL [Suspect]
     Active Substance: MYCOPHENOLATE MOFETIL
     Indication: Rheumatoid arthritis
  268. MYCOPHENOLATE MOFETIL [Suspect]
     Active Substance: MYCOPHENOLATE MOFETIL
  269. METHOTREXATE [Suspect]
     Active Substance: METHOTREXATE
     Indication: Rheumatoid arthritis
  270. METHOTREXATE [Suspect]
     Active Substance: METHOTREXATE
     Route: 048
  271. METHOTREXATE [Suspect]
     Active Substance: METHOTREXATE
     Route: 048
  272. METHOTREXATE [Suspect]
     Active Substance: METHOTREXATE
  273. METHOTREXATE [Suspect]
     Active Substance: METHOTREXATE
     Route: 050
  274. METHOTREXATE [Suspect]
     Active Substance: METHOTREXATE
     Dosage: 25 MG, QW
  275. METHOTREXATE [Suspect]
     Active Substance: METHOTREXATE
     Dosage: 15 MG, QD
  276. METHOTREXATE [Suspect]
     Active Substance: METHOTREXATE
     Route: 048
  277. METHOTREXATE [Suspect]
     Active Substance: METHOTREXATE
     Dosage: 25 G, QW
     Route: 013
  278. METHOTREXATE [Suspect]
     Active Substance: METHOTREXATE
  279. METHOTREXATE [Suspect]
     Active Substance: METHOTREXATE
     Dosage: 25 G, QW
     Route: 048
  280. METHOTREXATE [Suspect]
     Active Substance: METHOTREXATE
     Dosage: 25 MG, QD
     Route: 013
  281. METHOTREXATE [Suspect]
     Active Substance: METHOTREXATE
     Route: 050
  282. METHOTREXATE [Suspect]
     Active Substance: METHOTREXATE
     Route: 048
  283. METHOTREXATE [Suspect]
     Active Substance: METHOTREXATE
     Dosage: 25 MG, QW
     Route: 050
  284. METHOTREXATE [Suspect]
     Active Substance: METHOTREXATE
     Dosage: 25 MG, QD
     Route: 048
  285. METHOTREXATE [Suspect]
     Active Substance: METHOTREXATE
     Route: 013
  286. METHOTREXATE [Suspect]
     Active Substance: METHOTREXATE
     Dosage: 25 MG, QD
     Route: 058
  287. METHOTREXATE [Suspect]
     Active Substance: METHOTREXATE
     Dosage: 20 MG, QD
     Route: 050
  288. METHOTREXATE [Suspect]
     Active Substance: METHOTREXATE
     Route: 048
  289. METHOTREXATE [Suspect]
     Active Substance: METHOTREXATE
  290. METHOTREXATE [Suspect]
     Active Substance: METHOTREXATE
  291. METHOTREXATE [Suspect]
     Active Substance: METHOTREXATE
  292. METHOTREXATE [Suspect]
     Active Substance: METHOTREXATE
  293. METHOTREXATE [Suspect]
     Active Substance: METHOTREXATE
     Route: 048
  294. METHOTREXATE [Suspect]
     Active Substance: METHOTREXATE
     Route: 048
  295. METHOTREXATE [Suspect]
     Active Substance: METHOTREXATE
     Dosage: 20 MG, QD
     Route: 048
  296. METHOTREXATE [Suspect]
     Active Substance: METHOTREXATE
     Dosage: 25 G, QD
     Route: 048
  297. METHOTREXATE [Suspect]
     Active Substance: METHOTREXATE
     Dosage: 20 MG, QD
  298. REMICADE [Suspect]
     Active Substance: INFLIXIMAB
     Indication: Rheumatoid arthritis
     Route: 050
  299. REMICADE [Suspect]
     Active Substance: INFLIXIMAB
     Route: 042
  300. REMICADE [Suspect]
     Active Substance: INFLIXIMAB
     Route: 050
  301. REMICADE [Suspect]
     Active Substance: INFLIXIMAB
     Route: 058
  302. REMICADE [Suspect]
     Active Substance: INFLIXIMAB
     Route: 050
  303. REMICADE [Suspect]
     Active Substance: INFLIXIMAB
     Route: 042
  304. REMICADE [Suspect]
     Active Substance: INFLIXIMAB
  305. REMICADE [Suspect]
     Active Substance: INFLIXIMAB
  306. REMICADE [Suspect]
     Active Substance: INFLIXIMAB
     Route: 042
  307. REMICADE [Suspect]
     Active Substance: INFLIXIMAB
     Route: 042
  308. REMICADE [Suspect]
     Active Substance: INFLIXIMAB
     Route: 050
  309. REMICADE [Suspect]
     Active Substance: INFLIXIMAB
  310. REMICADE [Suspect]
     Active Substance: INFLIXIMAB
     Route: 050
  311. REMICADE [Suspect]
     Active Substance: INFLIXIMAB
     Route: 042
  312. REMICADE [Suspect]
     Active Substance: INFLIXIMAB
     Route: 050
  313. REMICADE [Suspect]
     Active Substance: INFLIXIMAB
     Route: 042
  314. REMICADE [Suspect]
     Active Substance: INFLIXIMAB
     Route: 050
  315. REMICADE [Suspect]
     Active Substance: INFLIXIMAB
     Route: 042
  316. REMICADE [Suspect]
     Active Substance: INFLIXIMAB
     Route: 042
  317. REMICADE [Suspect]
     Active Substance: INFLIXIMAB
     Route: 042
  318. REMICADE [Suspect]
     Active Substance: INFLIXIMAB
     Route: 042
  319. REMICADE [Suspect]
     Active Substance: INFLIXIMAB
     Route: 042
  320. REMICADE [Suspect]
     Active Substance: INFLIXIMAB
  321. REMICADE [Suspect]
     Active Substance: INFLIXIMAB
     Route: 042
  322. REMICADE [Suspect]
     Active Substance: INFLIXIMAB
     Route: 050
  323. REMICADE [Suspect]
     Active Substance: INFLIXIMAB
     Route: 042
  324. REMICADE [Suspect]
     Active Substance: INFLIXIMAB
     Route: 042
  325. REMICADE [Suspect]
     Active Substance: INFLIXIMAB
     Route: 042
  326. CETIRIZINE [Suspect]
     Active Substance: CETIRIZINE HYDROCHLORIDE
     Indication: Off label use
     Route: 048
  327. CETIRIZINE [Suspect]
     Active Substance: CETIRIZINE HYDROCHLORIDE
     Indication: Rheumatoid arthritis
  328. CETIRIZINE [Suspect]
     Active Substance: CETIRIZINE HYDROCHLORIDE
  329. CETIRIZINE [Suspect]
     Active Substance: CETIRIZINE HYDROCHLORIDE
     Route: 048
  330. CETIRIZINE [Suspect]
     Active Substance: CETIRIZINE HYDROCHLORIDE
  331. CETIRIZINE [Suspect]
     Active Substance: CETIRIZINE HYDROCHLORIDE
  332. CETIRIZINE [Suspect]
     Active Substance: CETIRIZINE HYDROCHLORIDE
     Dosage: 10 MG, QD
     Route: 048
  333. CETIRIZINE [Suspect]
     Active Substance: CETIRIZINE HYDROCHLORIDE
  334. CETIRIZINE [Suspect]
     Active Substance: CETIRIZINE HYDROCHLORIDE
     Dosage: 10 MG, QD
     Route: 048
  335. CETIRIZINE [Suspect]
     Active Substance: CETIRIZINE HYDROCHLORIDE
  336. CETIRIZINE [Suspect]
     Active Substance: CETIRIZINE HYDROCHLORIDE
  337. CETIRIZINE [Suspect]
     Active Substance: CETIRIZINE HYDROCHLORIDE
  338. CETIRIZINE [Suspect]
     Active Substance: CETIRIZINE HYDROCHLORIDE
  339. CETIRIZINE [Suspect]
     Active Substance: CETIRIZINE HYDROCHLORIDE
  340. CETIRIZINE [Suspect]
     Active Substance: CETIRIZINE HYDROCHLORIDE
  341. CETIRIZINE [Suspect]
     Active Substance: CETIRIZINE HYDROCHLORIDE
  342. CETIRIZINE [Suspect]
     Active Substance: CETIRIZINE HYDROCHLORIDE
  343. CETIRIZINE [Suspect]
     Active Substance: CETIRIZINE HYDROCHLORIDE
  344. CETIRIZINE [Suspect]
     Active Substance: CETIRIZINE HYDROCHLORIDE
  345. DICLOFENAC [Suspect]
     Active Substance: DICLOFENAC
     Indication: Product used for unknown indication
  346. NICOTINAMIDE [Suspect]
     Active Substance: NIACINAMIDE
     Indication: Product used for unknown indication
  347. HYDROCORTISONE PROBUTATE [Suspect]
     Active Substance: HYDROCORTISONE PROBUTATE
     Indication: Rheumatoid arthritis
  348. HYDROCORTISONE PROBUTATE [Suspect]
     Active Substance: HYDROCORTISONE PROBUTATE
  349. XELJANZ [Suspect]
     Active Substance: TOFACITINIB CITRATE
     Indication: Psoriatic arthropathy
     Dosage: 10 MG, Q24H
  350. XELJANZ [Suspect]
     Active Substance: TOFACITINIB CITRATE
     Indication: Rheumatoid arthritis
  351. XELJANZ [Suspect]
     Active Substance: TOFACITINIB CITRATE
     Dosage: 5 MG, QD
     Route: 048
  352. XELJANZ [Suspect]
     Active Substance: TOFACITINIB CITRATE
     Dosage: 5 MG, QW
     Route: 048
  353. XELJANZ [Suspect]
     Active Substance: TOFACITINIB CITRATE
     Route: 050
  354. XELJANZ [Suspect]
     Active Substance: TOFACITINIB CITRATE
     Dosage: 10 MG
     Route: 050
  355. XELJANZ [Suspect]
     Active Substance: TOFACITINIB CITRATE
     Dosage: 1 DOSAGE FORM, Q24H
  356. XELJANZ [Suspect]
     Active Substance: TOFACITINIB CITRATE
  357. XELJANZ [Suspect]
     Active Substance: TOFACITINIB CITRATE
     Dosage: 5 MG, BID
     Route: 048
  358. XELJANZ [Suspect]
     Active Substance: TOFACITINIB CITRATE
     Dosage: 5 MG, BID
     Route: 050
  359. XELJANZ [Suspect]
     Active Substance: TOFACITINIB CITRATE
     Dosage: 5 MG, BID
     Route: 048
  360. XELJANZ [Suspect]
     Active Substance: TOFACITINIB CITRATE
     Dosage: 5 MG, QW
     Route: 048
  361. PREDNISONE [Suspect]
     Active Substance: PREDNISONE
     Indication: Rheumatoid arthritis
     Route: 050
  362. PREDNISONE [Suspect]
     Active Substance: PREDNISONE
     Route: 048
  363. ENBREL [Suspect]
     Active Substance: ETANERCEPT
     Indication: Psoriatic arthropathy
     Route: 058
  364. ENBREL [Suspect]
     Active Substance: ETANERCEPT
     Indication: Rheumatoid arthritis
     Dosage: 50 MG, QW
     Route: 058
  365. ENBREL [Suspect]
     Active Substance: ETANERCEPT
     Route: 058
  366. ENBREL [Suspect]
     Active Substance: ETANERCEPT
     Dosage: 20 MG, QW
     Route: 058
  367. ENBREL [Suspect]
     Active Substance: ETANERCEPT
     Dosage: 50 MG, QW
     Route: 058
  368. HYDROXYCHLOROQUINE [Suspect]
     Active Substance: HYDROXYCHLOROQUINE
     Indication: Rheumatoid arthritis
  369. HYDROXYCHLOROQUINE [Suspect]
     Active Substance: HYDROXYCHLOROQUINE
  370. PHTHALYLSULFATHIAZOLE [Suspect]
     Active Substance: PHTHALYLSULFATHIAZOLE
     Indication: Rheumatoid arthritis
     Route: 050
  371. PHTHALYLSULFATHIAZOLE [Suspect]
     Active Substance: PHTHALYLSULFATHIAZOLE
  372. PHTHALYLSULFATHIAZOLE [Suspect]
     Active Substance: PHTHALYLSULFATHIAZOLE
     Route: 048
  373. PHTHALYLSULFATHIAZOLE [Suspect]
     Active Substance: PHTHALYLSULFATHIAZOLE
  374. PHTHALYLSULFATHIAZOLE [Suspect]
     Active Substance: PHTHALYLSULFATHIAZOLE
  375. PHTHALYLSULFATHIAZOLE [Suspect]
     Active Substance: PHTHALYLSULFATHIAZOLE
     Route: 050
  376. PHTHALYLSULFATHIAZOLE [Suspect]
     Active Substance: PHTHALYLSULFATHIAZOLE
     Route: 058
  377. PHTHALYLSULFATHIAZOLE [Suspect]
     Active Substance: PHTHALYLSULFATHIAZOLE
     Route: 050
  378. PHTHALYLSULFATHIAZOLE [Suspect]
     Active Substance: PHTHALYLSULFATHIAZOLE
  379. PHTHALYLSULFATHIAZOLE [Suspect]
     Active Substance: PHTHALYLSULFATHIAZOLE
     Route: 048
  380. PHTHALYLSULFATHIAZOLE [Suspect]
     Active Substance: PHTHALYLSULFATHIAZOLE
     Route: 050
  381. PHTHALYLSULFATHIAZOLE [Suspect]
     Active Substance: PHTHALYLSULFATHIAZOLE
  382. PHTHALYLSULFATHIAZOLE [Suspect]
     Active Substance: PHTHALYLSULFATHIAZOLE
     Dosage: 400 MG, QD
  383. PHTHALYLSULFATHIAZOLE [Suspect]
     Active Substance: PHTHALYLSULFATHIAZOLE
     Route: 050
  384. PHTHALYLSULFATHIAZOLE [Suspect]
     Active Substance: PHTHALYLSULFATHIAZOLE
     Route: 042
  385. PHTHALYLSULFATHIAZOLE [Suspect]
     Active Substance: PHTHALYLSULFATHIAZOLE
  386. PHTHALYLSULFATHIAZOLE [Suspect]
     Active Substance: PHTHALYLSULFATHIAZOLE
     Route: 058
  387. PHTHALYLSULFATHIAZOLE [Suspect]
     Active Substance: PHTHALYLSULFATHIAZOLE
  388. PHTHALYLSULFATHIAZOLE [Suspect]
     Active Substance: PHTHALYLSULFATHIAZOLE
     Route: 016
  389. PHTHALYLSULFATHIAZOLE [Suspect]
     Active Substance: PHTHALYLSULFATHIAZOLE
     Dosage: 1000 MG, BID
     Route: 050
  390. PHTHALYLSULFATHIAZOLE [Suspect]
     Active Substance: PHTHALYLSULFATHIAZOLE
     Route: 048
  391. PHTHALYLSULFATHIAZOLE [Suspect]
     Active Substance: PHTHALYLSULFATHIAZOLE
     Dosage: 500 MG, BID
  392. PHTHALYLSULFATHIAZOLE [Suspect]
     Active Substance: PHTHALYLSULFATHIAZOLE
  393. PHTHALYLSULFATHIAZOLE [Suspect]
     Active Substance: PHTHALYLSULFATHIAZOLE
     Route: 016
  394. PHTHALYLSULFATHIAZOLE [Suspect]
     Active Substance: PHTHALYLSULFATHIAZOLE
     Route: 048
  395. PHTHALYLSULFATHIAZOLE [Suspect]
     Active Substance: PHTHALYLSULFATHIAZOLE
     Dosage: UNK, Q24H
     Route: 048
  396. PHTHALYLSULFATHIAZOLE [Suspect]
     Active Substance: PHTHALYLSULFATHIAZOLE
  397. PHTHALYLSULFATHIAZOLE [Suspect]
     Active Substance: PHTHALYLSULFATHIAZOLE
     Route: 050
  398. PHTHALYLSULFATHIAZOLE [Suspect]
     Active Substance: PHTHALYLSULFATHIAZOLE
     Route: 042
  399. PHTHALYLSULFATHIAZOLE [Suspect]
     Active Substance: PHTHALYLSULFATHIAZOLE
     Dosage: 1000 MG, BID
  400. PHTHALYLSULFATHIAZOLE [Suspect]
     Active Substance: PHTHALYLSULFATHIAZOLE
     Route: 048
  401. CETIRIZINE HYDROCHLORIDE\PHENYLEPHRINE HYDROCHLORIDE [Suspect]
     Active Substance: CETIRIZINE HYDROCHLORIDE\PHENYLEPHRINE HYDROCHLORIDE
     Indication: Product used for unknown indication
  402. CETIRIZINE HYDROCHLORIDE\PHENYLEPHRINE HYDROCHLORIDE [Suspect]
     Active Substance: CETIRIZINE HYDROCHLORIDE\PHENYLEPHRINE HYDROCHLORIDE
  403. HYDROXYCHLOROQUINE SULFATE [Suspect]
     Active Substance: HYDROXYCHLOROQUINE SULFATE
     Indication: Rheumatoid arthritis
     Dosage: 400 MG, QD
  404. HYDROXYCHLOROQUINE SULFATE [Suspect]
     Active Substance: HYDROXYCHLOROQUINE SULFATE
     Dosage: 400 MG, QD
  405. HYDROXYCHLOROQUINE SULFATE [Suspect]
     Active Substance: HYDROXYCHLOROQUINE SULFATE
     Route: 048
  406. HYDROXYCHLOROQUINE SULFATE [Suspect]
     Active Substance: HYDROXYCHLOROQUINE SULFATE
  407. HYDROXYCHLOROQUINE SULFATE [Suspect]
     Active Substance: HYDROXYCHLOROQUINE SULFATE
  408. PANTOPRAZOLE SODIUM ANHYDROUS [Suspect]
     Active Substance: PANTOPRAZOLE SODIUM ANHYDROUS
     Indication: Product used for unknown indication
  409. PANTOPRAZOLE SODIUM ANHYDROUS [Suspect]
     Active Substance: PANTOPRAZOLE SODIUM ANHYDROUS
  410. CETIRIZINE HYDROCHLORIDE\PSEUDOEPHEDRINE HYDROCHLORIDE [Suspect]
     Active Substance: CETIRIZINE HYDROCHLORIDE\PSEUDOEPHEDRINE HYDROCHLORIDE
     Indication: Rheumatoid arthritis
  411. CETIRIZINE HYDROCHLORIDE\PSEUDOEPHEDRINE HYDROCHLORIDE [Suspect]
     Active Substance: CETIRIZINE HYDROCHLORIDE\PSEUDOEPHEDRINE HYDROCHLORIDE
  412. CETIRIZINE HYDROCHLORIDE\PSEUDOEPHEDRINE HYDROCHLORIDE [Suspect]
     Active Substance: CETIRIZINE HYDROCHLORIDE\PSEUDOEPHEDRINE HYDROCHLORIDE
  413. METHOTREXATE [Suspect]
     Active Substance: METHOTREXATE
     Indication: Rheumatoid arthritis
     Dosage: 25 MG, QW (INJECTION, USP), SOLUTION
     Route: 058
  414. METHOTREXATE [Suspect]
     Active Substance: METHOTREXATE
     Dosage: 25 MG, QD (INJECTION, USP), SOLUTION
     Route: 048
  415. METHOTREXATE [Suspect]
     Active Substance: METHOTREXATE
     Dosage: 15 MG, QD (INJECTION, USP), SOLUTION
     Route: 048
  416. METHOTREXATE [Suspect]
     Active Substance: METHOTREXATE
     Dosage: 25 MG, QW (INJECTION, USP), SOLUTION
     Route: 013
  417. METHOTREXATE [Suspect]
     Active Substance: METHOTREXATE
     Dosage: UNK, QD, SOLUTION
  418. METHOTREXATE [Suspect]
     Active Substance: METHOTREXATE
     Dosage: 20 MG, QD (INJECTION, USP), SOLUTION
     Route: 048
  419. METHOTREXATE [Suspect]
     Active Substance: METHOTREXATE
     Dosage: 25 MG, QW (INJECTION, USP), SOLUTION
     Route: 058
  420. METHOTREXATE [Suspect]
     Active Substance: METHOTREXATE
     Dosage: 20 MG, QW (INJECTION, USP), SOLUTION
     Route: 058
  421. METHOTREXATE [Suspect]
     Active Substance: METHOTREXATE
  422. PREDNISONE [Suspect]
     Active Substance: PREDNISONE
     Indication: Condition aggravated
  423. PREDNISONE [Suspect]
     Active Substance: PREDNISONE
     Indication: Rheumatoid arthritis
  424. PREDNISONE [Suspect]
     Active Substance: PREDNISONE
  425. PREDNISONE [Suspect]
     Active Substance: PREDNISONE
  426. PREDNISONE [Suspect]
     Active Substance: PREDNISONE
  427. PREDNISONE [Suspect]
     Active Substance: PREDNISONE
     Route: 050
  428. PREDNISONE [Suspect]
     Active Substance: PREDNISONE
     Route: 042
  429. PREDNISONE [Suspect]
     Active Substance: PREDNISONE
  430. PREDNISONE [Suspect]
     Active Substance: PREDNISONE
  431. PREDNISONE [Suspect]
     Active Substance: PREDNISONE
  432. PREDNISONE [Suspect]
     Active Substance: PREDNISONE
     Route: 048
  433. PREDNISONE [Suspect]
     Active Substance: PREDNISONE
     Route: 048
  434. PREDNISONE [Suspect]
     Active Substance: PREDNISONE
     Route: 050
  435. PREDNISONE [Suspect]
     Active Substance: PREDNISONE
     Route: 050
  436. PREDNISONE [Suspect]
     Active Substance: PREDNISONE
     Route: 048
  437. PREDNISONE [Suspect]
     Active Substance: PREDNISONE
     Route: 048
  438. PREDNISONE [Suspect]
     Active Substance: PREDNISONE
  439. PREDNISONE [Suspect]
     Active Substance: PREDNISONE
  440. PREDNISONE [Suspect]
     Active Substance: PREDNISONE
  441. PREDNISONE [Suspect]
     Active Substance: PREDNISONE
     Route: 050
  442. PREDNISONE [Suspect]
     Active Substance: PREDNISONE
  443. DICLOFENAC DIETHYLAMINE [Suspect]
     Active Substance: DICLOFENAC DIETHYLAMINE
     Indication: Product used for unknown indication
  444. ACETAMINOPHEN AND CODEINE [Suspect]
     Active Substance: ACETAMINOPHEN\CODEINE PHOSPHATE
     Indication: Product used for unknown indication
  445. ACETAMINOPHEN AND CODEINE [Suspect]
     Active Substance: ACETAMINOPHEN\CODEINE PHOSPHATE
  446. ACETAMINOPHEN AND CODEINE [Suspect]
     Active Substance: ACETAMINOPHEN\CODEINE PHOSPHATE
  447. ACETAMINOPHEN AND CODEINE [Suspect]
     Active Substance: ACETAMINOPHEN\CODEINE PHOSPHATE
  448. ACETAMINOPHEN AND CODEINE [Suspect]
     Active Substance: ACETAMINOPHEN\CODEINE PHOSPHATE
  449. ACETAMINOPHEN AND CODEINE [Suspect]
     Active Substance: ACETAMINOPHEN\CODEINE PHOSPHATE
  450. HYDROCORTISONE [Suspect]
     Active Substance: HYDROCORTISONE
     Indication: Rheumatoid arthritis
  451. HYDROCORTISONE [Suspect]
     Active Substance: HYDROCORTISONE
  452. FLUMETHASONE PIVALATE [Suspect]
     Active Substance: FLUMETHASONE PIVALATE
     Indication: Rheumatoid arthritis
  453. FLUMETHASONE PIVALATE [Suspect]
     Active Substance: FLUMETHASONE PIVALATE
     Route: 058
  454. FLUMETHASONE PIVALATE [Suspect]
     Active Substance: FLUMETHASONE PIVALATE
     Route: 050
  455. FLUMETHASONE PIVALATE [Suspect]
     Active Substance: FLUMETHASONE PIVALATE
  456. FLUMETHASONE PIVALATE [Suspect]
     Active Substance: FLUMETHASONE PIVALATE
     Route: 050
  457. FLUMETHASONE PIVALATE [Suspect]
     Active Substance: FLUMETHASONE PIVALATE
     Route: 058
  458. GOLIMUMAB [Suspect]
     Active Substance: GOLIMUMAB
     Indication: Rheumatoid arthritis
  459. GOLIMUMAB [Suspect]
     Active Substance: GOLIMUMAB
  460. GOLIMUMAB [Suspect]
     Active Substance: GOLIMUMAB
     Route: 050
  461. GOLIMUMAB [Suspect]
     Active Substance: GOLIMUMAB
     Route: 058
  462. GOLIMUMAB [Suspect]
     Active Substance: GOLIMUMAB
  463. GOLIMUMAB [Suspect]
     Active Substance: GOLIMUMAB
  464. SIMPONI [Suspect]
     Active Substance: GOLIMUMAB
     Indication: Psoriatic arthropathy
     Route: 050
  465. SIMPONI [Suspect]
     Active Substance: GOLIMUMAB
     Indication: Rheumatoid arthritis
     Route: 042
  466. SIMPONI [Suspect]
     Active Substance: GOLIMUMAB
     Route: 050
  467. SIMPONI [Suspect]
     Active Substance: GOLIMUMAB
     Route: 058
  468. SIMPONI [Suspect]
     Active Substance: GOLIMUMAB
     Dosage: 50 MG, QMO, SOLUTION
     Route: 058
  469. SIMPONI [Suspect]
     Active Substance: GOLIMUMAB
     Route: 050
  470. SIMPONI [Suspect]
     Active Substance: GOLIMUMAB
     Route: 042
  471. SIMPONI [Suspect]
     Active Substance: GOLIMUMAB
     Dosage: 50 MG, QMO, SOLUTION
     Route: 058
  472. SIMPONI [Suspect]
     Active Substance: GOLIMUMAB
     Route: 050
  473. SIMPONI [Suspect]
     Active Substance: GOLIMUMAB
     Route: 058
  474. SIMPONI [Suspect]
     Active Substance: GOLIMUMAB
     Dosage: 50 MG, QMO, SOLUTION
  475. TOFACITINIB CITRATE [Suspect]
     Active Substance: TOFACITINIB CITRATE
     Indication: Psoriatic arthropathy
     Dosage: 5 MG, BID
  476. TOFACITINIB CITRATE [Suspect]
     Active Substance: TOFACITINIB CITRATE
     Indication: Rheumatoid arthritis
     Dosage: 5 MG, BID
     Route: 050
  477. TOFACITINIB CITRATE [Suspect]
     Active Substance: TOFACITINIB CITRATE
  478. TOFACITINIB CITRATE [Suspect]
     Active Substance: TOFACITINIB CITRATE
     Dosage: 5 MG, QW
  479. TOFACITINIB CITRATE [Suspect]
     Active Substance: TOFACITINIB CITRATE
  480. TOFACITINIB CITRATE [Suspect]
     Active Substance: TOFACITINIB CITRATE
  481. TOFACITINIB CITRATE [Suspect]
     Active Substance: TOFACITINIB CITRATE
     Dosage: 10 MG, QD
  482. ERELZI [Suspect]
     Active Substance: ETANERCEPT-SZZS
     Indication: Rheumatoid arthritis
  483. ERELZI [Suspect]
     Active Substance: ETANERCEPT-SZZS
  484. ERELZI [Suspect]
     Active Substance: ETANERCEPT-SZZS
  485. ERELZI [Suspect]
     Active Substance: ETANERCEPT-SZZS
  486. ERELZI [Suspect]
     Active Substance: ETANERCEPT-SZZS
  487. ERELZI [Suspect]
     Active Substance: ETANERCEPT-SZZS
  488. ERELZI [Suspect]
     Active Substance: ETANERCEPT-SZZS
  489. ERELZI [Suspect]
     Active Substance: ETANERCEPT-SZZS
  490. ERELZI [Suspect]
     Active Substance: ETANERCEPT-SZZS
  491. ERELZI [Suspect]
     Active Substance: ETANERCEPT-SZZS
  492. ERELZI [Suspect]
     Active Substance: ETANERCEPT-SZZS
     Dosage: 50 MG, QW, SUBCUTANEOUS SOLUTION FOR INJECTION
  493. ERELZI [Suspect]
     Active Substance: ETANERCEPT-SZZS
  494. ERELZI [Suspect]
     Active Substance: ETANERCEPT-SZZS
  495. ERELZI [Suspect]
     Active Substance: ETANERCEPT-SZZS
  496. ERELZI [Suspect]
     Active Substance: ETANERCEPT-SZZS
  497. ERELZI [Suspect]
     Active Substance: ETANERCEPT-SZZS
  498. KEVZARA [Suspect]
     Active Substance: SARILUMAB
     Indication: Rheumatoid arthritis
  499. KEVZARA [Suspect]
     Active Substance: SARILUMAB
  500. KEVZARA [Suspect]
     Active Substance: SARILUMAB
  501. KEVZARA [Suspect]
     Active Substance: SARILUMAB
  502. PSEUDOEPHEDRINE [Suspect]
     Active Substance: PSEUDOEPHEDRINE
     Indication: Rheumatoid arthritis
  503. PSEUDOEPHEDRINE [Suspect]
     Active Substance: PSEUDOEPHEDRINE
  504. PSEUDOEPHEDRINE [Suspect]
     Active Substance: PSEUDOEPHEDRINE
  505. ISOPROPYL ALCOHOL [Suspect]
     Active Substance: ISOPROPYL ALCOHOL
     Indication: Product used for unknown indication
     Route: 050
  506. ISOPROPYL ALCOHOL [Suspect]
     Active Substance: ISOPROPYL ALCOHOL
     Route: 002
  507. TOCILIZUMAB [Suspect]
     Active Substance: TOCILIZUMAB
     Indication: Rheumatoid arthritis
     Route: 050
  508. TOCILIZUMAB [Suspect]
     Active Substance: TOCILIZUMAB
     Route: 042
  509. TOCILIZUMAB [Suspect]
     Active Substance: TOCILIZUMAB
     Route: 050
  510. TOCILIZUMAB [Suspect]
     Active Substance: TOCILIZUMAB
     Route: 005
  511. TOCILIZUMAB [Suspect]
     Active Substance: TOCILIZUMAB
     Route: 050
  512. TOCILIZUMAB [Suspect]
     Active Substance: TOCILIZUMAB
     Route: 058
  513. VITAMIN D3 [Suspect]
     Active Substance: CHOLECALCIFEROL
     Indication: Rheumatoid arthritis
  514. VITAMIN D3 [Suspect]
     Active Substance: CHOLECALCIFEROL
  515. TRAMADOL HYDROCHLORIDE [Suspect]
     Active Substance: TRAMADOL HYDROCHLORIDE
     Indication: Rheumatoid arthritis
  516. TRAMADOL HYDROCHLORIDE [Suspect]
     Active Substance: TRAMADOL HYDROCHLORIDE
  517. CETIRIZINE HYDROCHLORIDE [Suspect]
     Active Substance: CETIRIZINE HYDROCHLORIDE
     Indication: Rheumatoid arthritis
  518. CETIRIZINE HYDROCHLORIDE [Suspect]
     Active Substance: CETIRIZINE HYDROCHLORIDE
  519. CETIRIZINE HYDROCHLORIDE [Suspect]
     Active Substance: CETIRIZINE HYDROCHLORIDE
     Route: 050
  520. CETIRIZINE HYDROCHLORIDE [Suspect]
     Active Substance: CETIRIZINE HYDROCHLORIDE
  521. CETIRIZINE HYDROCHLORIDE [Suspect]
     Active Substance: CETIRIZINE HYDROCHLORIDE
     Dosage: 10 MG, QD
     Route: 048
  522. CETIRIZINE HYDROCHLORIDE [Suspect]
     Active Substance: CETIRIZINE HYDROCHLORIDE
  523. CETIRIZINE HYDROCHLORIDE [Suspect]
     Active Substance: CETIRIZINE HYDROCHLORIDE
     Route: 016
  524. HYRIMOZ [Suspect]
     Active Substance: ADALIMUMAB-ADAZ
     Indication: Product used for unknown indication
     Route: 058
  525. HYRIMOZ [Suspect]
     Active Substance: ADALIMUMAB-ADAZ
     Route: 050
  526. HYRIMOZ [Suspect]
     Active Substance: ADALIMUMAB-ADAZ
     Route: 058
  527. HYRIMOZ [Suspect]
     Active Substance: ADALIMUMAB-ADAZ
     Route: 058
  528. HYRIMOZ [Suspect]
     Active Substance: ADALIMUMAB-ADAZ
     Route: 057
  529. HYRIMOZ [Suspect]
     Active Substance: ADALIMUMAB-ADAZ
     Dosage: 40 MG, QW
     Route: 058
  530. HYRIMOZ [Suspect]
     Active Substance: ADALIMUMAB-ADAZ
     Route: 058
  531. HYRIMOZ [Suspect]
     Active Substance: ADALIMUMAB-ADAZ
     Route: 058
  532. HYRIMOZ [Suspect]
     Active Substance: ADALIMUMAB-ADAZ
     Route: 058
  533. HYRIMOZ [Suspect]
     Active Substance: ADALIMUMAB-ADAZ
     Route: 058
  534. HYRIMOZ [Suspect]
     Active Substance: ADALIMUMAB-ADAZ
     Route: 050
  535. HYRIMOZ [Suspect]
     Active Substance: ADALIMUMAB-ADAZ
     Route: 057
  536. HYRIMOZ [Suspect]
     Active Substance: ADALIMUMAB-ADAZ
     Route: 050
  537. HYRIMOZ [Suspect]
     Active Substance: ADALIMUMAB-ADAZ
     Route: 058
  538. HYRIMOZ [Suspect]
     Active Substance: ADALIMUMAB-ADAZ
     Route: 048
  539. HYRIMOZ [Suspect]
     Active Substance: ADALIMUMAB-ADAZ
     Route: 058
  540. HYRIMOZ [Suspect]
     Active Substance: ADALIMUMAB-ADAZ
     Route: 058
  541. HYRIMOZ [Suspect]
     Active Substance: ADALIMUMAB-ADAZ
     Route: 057
  542. ALENDRONATE SODIUM [Suspect]
     Active Substance: ALENDRONATE SODIUM
     Indication: Rheumatoid arthritis
     Route: 050
  543. ALENDRONATE SODIUM [Suspect]
     Active Substance: ALENDRONATE SODIUM
  544. ALENDRONATE SODIUM [Suspect]
     Active Substance: ALENDRONATE SODIUM
  545. ALENDRONATE SODIUM [Suspect]
     Active Substance: ALENDRONATE SODIUM
  546. ALENDRONATE SODIUM [Suspect]
     Active Substance: ALENDRONATE SODIUM
     Route: 048
  547. ALENDRONATE SODIUM [Suspect]
     Active Substance: ALENDRONATE SODIUM
  548. ALENDRONATE SODIUM [Suspect]
     Active Substance: ALENDRONATE SODIUM
     Route: 048
  549. ALENDRONATE SODIUM [Suspect]
     Active Substance: ALENDRONATE SODIUM
     Route: 050
  550. ALENDRONATE SODIUM [Suspect]
     Active Substance: ALENDRONATE SODIUM
     Route: 048
  551. ALENDRONATE SODIUM [Suspect]
     Active Substance: ALENDRONATE SODIUM
     Route: 048
  552. ARAVA [Suspect]
     Active Substance: LEFLUNOMIDE
     Indication: Rheumatoid arthritis
     Dosage: 20 MG, QD
     Route: 048
  553. ARAVA [Suspect]
     Active Substance: LEFLUNOMIDE
  554. ARAVA [Suspect]
     Active Substance: LEFLUNOMIDE
  555. ARAVA [Suspect]
     Active Substance: LEFLUNOMIDE
     Dosage: 20 MG, QD
     Route: 048
  556. ARAVA [Suspect]
     Active Substance: LEFLUNOMIDE
  557. ARAVA [Suspect]
     Active Substance: LEFLUNOMIDE
     Route: 048
  558. ARAVA [Suspect]
     Active Substance: LEFLUNOMIDE
  559. ARAVA [Suspect]
     Active Substance: LEFLUNOMIDE
  560. ARAVA [Suspect]
     Active Substance: LEFLUNOMIDE
  561. ARAVA [Suspect]
     Active Substance: LEFLUNOMIDE
     Route: 050
  562. ARAVA [Suspect]
     Active Substance: LEFLUNOMIDE
     Route: 048
  563. CETIRIZINE HYDROCHLORIDE [Suspect]
     Active Substance: CETIRIZINE HYDROCHLORIDE
     Indication: Rheumatoid arthritis
     Route: 048
  564. CETIRIZINE HYDROCHLORIDE [Suspect]
     Active Substance: CETIRIZINE HYDROCHLORIDE
  565. CETIRIZINE HYDROCHLORIDE [Suspect]
     Active Substance: CETIRIZINE HYDROCHLORIDE
     Dosage: 10 MG, Q24H
     Route: 048
  566. CETIRIZINE HYDROCHLORIDE [Suspect]
     Active Substance: CETIRIZINE HYDROCHLORIDE
  567. CETIRIZINE HYDROCHLORIDE [Suspect]
     Active Substance: CETIRIZINE HYDROCHLORIDE
  568. CETIRIZINE HYDROCHLORIDE [Suspect]
     Active Substance: CETIRIZINE HYDROCHLORIDE
  569. CETIRIZINE HYDROCHLORIDE [Suspect]
     Active Substance: CETIRIZINE HYDROCHLORIDE
  570. CETIRIZINE HYDROCHLORIDE [Suspect]
     Active Substance: CETIRIZINE HYDROCHLORIDE
  571. CETIRIZINE HYDROCHLORIDE [Suspect]
     Active Substance: CETIRIZINE HYDROCHLORIDE
     Route: 005
  572. CETIRIZINE HYDROCHLORIDE [Suspect]
     Active Substance: CETIRIZINE HYDROCHLORIDE
     Route: 016
  573. VOLTAREN [Suspect]
     Active Substance: DICLOFENAC SODIUM
     Indication: Product used for unknown indication
  574. VOLTAREN [Suspect]
     Active Substance: DICLOFENAC SODIUM
  575. VOLTAREN [Suspect]
     Active Substance: DICLOFENAC SODIUM
  576. VOLTAREN [Suspect]
     Active Substance: DICLOFENAC SODIUM
  577. VOLTAREN [Suspect]
     Active Substance: DICLOFENAC SODIUM
  578. VOLTAREN [Suspect]
     Active Substance: DICLOFENAC SODIUM
  579. VOLTAREN [Suspect]
     Active Substance: DICLOFENAC SODIUM
     Dosage: 50 MG, QD
  580. VOLTAREN [Suspect]
     Active Substance: DICLOFENAC SODIUM
  581. VOLTAREN [Suspect]
     Active Substance: DICLOFENAC SODIUM
  582. VOLTAREN [Suspect]
     Active Substance: DICLOFENAC SODIUM
  583. VOLTAREN [Suspect]
     Active Substance: DICLOFENAC SODIUM
  584. VOLTAREN [Suspect]
     Active Substance: DICLOFENAC SODIUM
  585. VOLTAREN [Suspect]
     Active Substance: DICLOFENAC SODIUM
  586. VOLTAREN [Suspect]
     Active Substance: DICLOFENAC SODIUM
  587. VOLTAREN [Suspect]
     Active Substance: DICLOFENAC SODIUM
  588. VOLTAREN [Suspect]
     Active Substance: DICLOFENAC SODIUM
  589. VOLTAREN [Suspect]
     Active Substance: DICLOFENAC SODIUM
  590. VOLTAREN [Suspect]
     Active Substance: DICLOFENAC SODIUM
  591. VOLTAREN [Suspect]
     Active Substance: DICLOFENAC SODIUM
  592. NAPROXEN SODIUM [Suspect]
     Active Substance: NAPROXEN SODIUM
     Indication: Product used for unknown indication
     Dosage: 500 MG, BID
  593. NAPROXEN SODIUM [Suspect]
     Active Substance: NAPROXEN SODIUM
     Dosage: 500 MG, BID
  594. APREMILAST [Suspect]
     Active Substance: APREMILAST
     Indication: Product used for unknown indication
     Dosage: 3 MG, BID
  595. APREMILAST [Suspect]
     Active Substance: APREMILAST
     Dosage: 3 MG, BID
  596. ORENCIA [Suspect]
     Active Substance: ABATACEPT
     Indication: Rheumatoid arthritis
  597. ORENCIA [Suspect]
     Active Substance: ABATACEPT
  598. ORENCIA [Suspect]
     Active Substance: ABATACEPT
  599. ORENCIA [Suspect]
     Active Substance: ABATACEPT
  600. ORENCIA [Suspect]
     Active Substance: ABATACEPT
  601. ORENCIA [Suspect]
     Active Substance: ABATACEPT
     Dosage: 5 MG, QD
  602. ORENCIA [Suspect]
     Active Substance: ABATACEPT
  603. ORENCIA [Suspect]
     Active Substance: ABATACEPT
  604. ORENCIA [Suspect]
     Active Substance: ABATACEPT
     Dosage: 0.5 MG, Q24H
  605. ORENCIA [Suspect]
     Active Substance: ABATACEPT
  606. ORENCIA [Suspect]
     Active Substance: ABATACEPT
  607. ORENCIA [Suspect]
     Active Substance: ABATACEPT
  608. ORENCIA [Suspect]
     Active Substance: ABATACEPT
  609. ORENCIA [Suspect]
     Active Substance: ABATACEPT
  610. ORENCIA [Suspect]
     Active Substance: ABATACEPT
  611. ORENCIA [Suspect]
     Active Substance: ABATACEPT
  612. ORENCIA [Suspect]
     Active Substance: ABATACEPT
  613. ORENCIA [Suspect]
     Active Substance: ABATACEPT
  614. ORENCIA [Suspect]
     Active Substance: ABATACEPT
  615. OXYCODONE [Suspect]
     Active Substance: OXYCODONE
     Indication: Rheumatoid arthritis
  616. OXYCODONE [Suspect]
     Active Substance: OXYCODONE
  617. OXYCODONE [Suspect]
     Active Substance: OXYCODONE
  618. ACETAMINOPHEN [Suspect]
     Active Substance: ACETAMINOPHEN
     Indication: Rheumatoid arthritis
  619. ACETAMINOPHEN [Suspect]
     Active Substance: ACETAMINOPHEN
  620. ACETAMINOPHEN [Suspect]
     Active Substance: ACETAMINOPHEN
  621. ACETAMINOPHEN [Suspect]
     Active Substance: ACETAMINOPHEN
  622. ACETAMINOPHEN [Suspect]
     Active Substance: ACETAMINOPHEN
     Indication: Rheumatoid arthritis
  623. ACETAMINOPHEN [Suspect]
     Active Substance: ACETAMINOPHEN
  624. ACETAMINOPHEN [Suspect]
     Active Substance: ACETAMINOPHEN
  625. ACETAMINOPHEN [Suspect]
     Active Substance: ACETAMINOPHEN
  626. STELARA [Suspect]
     Active Substance: USTEKINUMAB
     Indication: Rheumatoid arthritis
     Route: 050
  627. STELARA [Suspect]
     Active Substance: USTEKINUMAB
     Indication: Psoriatic arthropathy
     Route: 058
  628. STELARA [Suspect]
     Active Substance: USTEKINUMAB
     Route: 042
  629. STELARA [Suspect]
     Active Substance: USTEKINUMAB
     Route: 042
  630. STELARA [Suspect]
     Active Substance: USTEKINUMAB
     Route: 050
  631. STELARA [Suspect]
     Active Substance: USTEKINUMAB
     Route: 058
  632. STELARA [Suspect]
     Active Substance: USTEKINUMAB
     Route: 050
  633. STELARA [Suspect]
     Active Substance: USTEKINUMAB
     Route: 058
  634. STELARA [Suspect]
     Active Substance: USTEKINUMAB
  635. STELARA [Suspect]
     Active Substance: USTEKINUMAB
  636. NEOMYCIN [Suspect]
     Active Substance: NEOMYCIN
     Indication: Product used for unknown indication
  637. NEOMYCIN [Suspect]
     Active Substance: NEOMYCIN
  638. DEXAMETHASONE SODIUM PHOSPHATE [Suspect]
     Active Substance: DEXAMETHASONE SODIUM PHOSPHATE
     Indication: Rheumatoid arthritis
  639. DEXAMETHASONE SODIUM PHOSPHATE [Suspect]
     Active Substance: DEXAMETHASONE SODIUM PHOSPHATE
     Route: 048
  640. DEXAMETHASONE SODIUM PHOSPHATE [Suspect]
     Active Substance: DEXAMETHASONE SODIUM PHOSPHATE
  641. DEXAMETHASONE SODIUM PHOSPHATE [Suspect]
     Active Substance: DEXAMETHASONE SODIUM PHOSPHATE
  642. DEXAMETHASONE SODIUM PHOSPHATE [Suspect]
     Active Substance: DEXAMETHASONE SODIUM PHOSPHATE
  643. DEXAMETHASONE SODIUM PHOSPHATE [Suspect]
     Active Substance: DEXAMETHASONE SODIUM PHOSPHATE
     Route: 048
  644. DEXAMETHASONE SODIUM PHOSPHATE [Suspect]
     Active Substance: DEXAMETHASONE SODIUM PHOSPHATE
     Route: 050
  645. DEXAMETHASONE SODIUM PHOSPHATE [Suspect]
     Active Substance: DEXAMETHASONE SODIUM PHOSPHATE
     Route: 048
  646. DEXAMETHASONE SODIUM PHOSPHATE [Suspect]
     Active Substance: DEXAMETHASONE SODIUM PHOSPHATE
  647. DEXAMETHASONE SODIUM PHOSPHATE [Suspect]
     Active Substance: DEXAMETHASONE SODIUM PHOSPHATE
     Route: 048
  648. DEXAMETHASONE SODIUM PHOSPHATE [Suspect]
     Active Substance: DEXAMETHASONE SODIUM PHOSPHATE
     Route: 050
  649. DEXAMETHASONE SODIUM PHOSPHATE [Suspect]
     Active Substance: DEXAMETHASONE SODIUM PHOSPHATE
  650. HUMIRA [Suspect]
     Active Substance: ADALIMUMAB
     Indication: Psoriatic arthropathy
     Route: 050
  651. HUMIRA [Suspect]
     Active Substance: ADALIMUMAB
     Indication: Rheumatoid arthritis
     Route: 057
  652. HUMIRA [Suspect]
     Active Substance: ADALIMUMAB
     Route: 058
  653. HUMIRA [Suspect]
     Active Substance: ADALIMUMAB
     Route: 058
  654. HUMIRA [Suspect]
     Active Substance: ADALIMUMAB
     Route: 057
  655. HUMIRA [Suspect]
     Active Substance: ADALIMUMAB
     Route: 058
  656. HUMIRA [Suspect]
     Active Substance: ADALIMUMAB
     Route: 050
  657. HUMIRA [Suspect]
     Active Substance: ADALIMUMAB
     Route: 058

REACTIONS (7)
  - Inflammation [Fatal]
  - Bursitis [Fatal]
  - Live birth [Fatal]
  - Exposure during pregnancy [Fatal]
  - Prescribed overdose [Fatal]
  - Normal newborn [Unknown]
  - Joint range of motion decreased [Fatal]
